FAERS Safety Report 5901332-8 (Version None)
Quarter: 2008Q3

REPORT INFORMATION
  Report Type: 
  Country: None (occurrence: None)
  Receive Date: 20080929
  Receipt Date: 20080916
  Transmission Date: 20090109
  Serious: Yes (Death, Hospitalization, Other)
  Sender: FDA-Public Use
  Company Number: JP-ELI_LILLY_AND_COMPANY-JP200809003950

PATIENT
  Age: 75 Year
  Sex: Male

DRUGS (2)
  1. GEMZAR [Suspect]
     Indication: PANCREATIC CARCINOMA RECURRENT
     Dosage: UNK, OTHER
     Route: 042
     Dates: start: 20040101
  2. INSULIN [Concomitant]
     Indication: TYPE 1 DIABETES MELLITUS
     Dosage: UNK, UNKNOWN
     Route: 065
     Dates: start: 20010101

REACTIONS (6)
  - ANOREXIA [None]
  - ASCITES [None]
  - MALIGNANT NEOPLASM PROGRESSION [None]
  - METASTASES TO LYMPH NODES [None]
  - OEDEMA [None]
  - PYREXIA [None]
